FAERS Safety Report 6135168-2 (Version None)
Quarter: 2009Q1

REPORT INFORMATION
  Report Type: 
  Country: None (occurrence: None)
  Receive Date: 20090325
  Receipt Date: 20090308
  Transmission Date: 20090719
  Serious: Yes (Other)
  Sender: FDA-Public Use
  Company Number: 2006S1003667

PATIENT
  Age: 68 Year
  Sex: Female
  Weight: 64.4108 kg

DRUGS (8)
  1. PHOSPHOSODA GINGER LEMON [Suspect]
     Indication: COLONOSCOPY
     Dosage: 90 ML;TOTAL;PO
     Route: 048
     Dates: start: 20040606, end: 20040607
  2. SYNTHROID [Concomitant]
  3. FOSAMAX [Concomitant]
  4. DETROL LA [Concomitant]
  5. ATACAND HCT [Concomitant]
  6. FLONASE [Concomitant]
  7. IBUPROFEN [Concomitant]
  8. CELEBREX [Concomitant]

REACTIONS (5)
  - ANAEMIA [None]
  - DIZZINESS [None]
  - FATIGUE [None]
  - INFLUENZA LIKE ILLNESS [None]
  - RENAL FAILURE [None]
